FAERS Safety Report 9994694 (Version 1)
Quarter: 2014Q1

REPORT INFORMATION
  Report Type: Spontaneous
  Country: US (occurrence: None)
  Receive Date: 20140306
  Receipt Date: 20140306
  Transmission Date: 20141002
  Serious: Yes (Hospitalization)
  Sender: FDA-Public Use
  Company Number: 20140085

PATIENT
  Age: 85 Year
  Sex: Male

DRUGS (1)
  1. BETAMETHASONE SODIUM PHOSPHATE [Suspect]
     Route: 008
     Dates: start: 20140106, end: 20140106

REACTIONS (10)
  - Hiccups [None]
  - Dyspnoea [None]
  - Cough [None]
  - Respiratory distress [None]
  - Respiratory failure [None]
  - Pneumonia [None]
  - Respiratory arrest [None]
  - Hyponatraemia [None]
  - Unevaluable event [None]
  - Listeria test positive [None]
